FAERS Safety Report 8413624-1 (Version None)
Quarter: 2012Q2

REPORT INFORMATION
  Report Type: 
  Country: None (occurrence: None)
  Receive Date: 20120605
  Receipt Date: 20120524
  Transmission Date: 20120825
  Serious: Yes (Death)
  Sender: FDA-Public Use
  Company Number: CA-ROCHE-1069916

PATIENT
  Sex: Female
  Weight: 44.492 kg

DRUGS (5)
  1. ACTEMRA [Suspect]
     Indication: JUVENILE ARTHRITIS
     Route: 042
     Dates: start: 20111220, end: 20120509
  2. PREDNISONE [Concomitant]
  3. METHOTREXATE [Concomitant]
  4. EFFEXOR [Concomitant]
  5. CLONAZEPAM [Concomitant]

REACTIONS (1)
  - DEATH [None]
